FAERS Safety Report 10203125 (Version 2)
Quarter: 2014Q3

REPORT INFORMATION
  Report Type: Spontaneous
  Country: US (occurrence: US)
  Receive Date: 20140529
  Receipt Date: 20140702
  Transmission Date: 20150326
  Serious: Yes (Other)
  Sender: FDA-Public Use
  Company Number: US-009507513-1405USA010467

PATIENT
  Age: 71 Year
  Sex: Female
  Weight: 59.86 kg

DRUGS (4)
  1. JANUVIA [Suspect]
     Active Substance: SITAGLIPTIN PHOSPHATE
     Indication: DIABETES MELLITUS
     Dosage: 100 MG, FREQUENCY UNKNOWN
     Route: 048
     Dates: start: 2013, end: 20140415
  2. COZAAR [Suspect]
     Active Substance: LOSARTAN POTASSIUM
     Dosage: UNK
     Route: 048
  3. CALCIUM CARBONATE. [Concomitant]
     Active Substance: CALCIUM CARBONATE
     Dosage: 1 DF, QD
     Route: 048
  4. CHOLECALCIFEROL [Concomitant]
     Active Substance: CHOLECALCIFEROL
     Dosage: 5000 UNIT,1 DF, QD
     Route: 048

REACTIONS (5)
  - Urticaria [Unknown]
  - Rash [Unknown]
  - Pruritus [Unknown]
  - Feeling hot [Unknown]
  - Chest pain [Unknown]

NARRATIVE: CASE EVENT DATE: 20140410
